FAERS Safety Report 9443143 (Version 3)
Quarter: 2014Q1

REPORT INFORMATION
  Report Type: Spontaneous
  Country: US (occurrence: US)
  Receive Date: 20130806
  Receipt Date: 20140103
  Transmission Date: 20141002
  Serious: Yes (Other)
  Sender: FDA-Public Use
  Company Number: US-BAYER-2013-094654

PATIENT
  Age: 23 Year
  Sex: Female
  Weight: 58.95 kg

DRUGS (9)
  1. MIRENA [Suspect]
     Indication: CONTRACEPTION
     Dosage: 20 MCG/24HR, CONT
     Route: 015
     Dates: start: 20101112, end: 20110826
  2. MIRENA [Suspect]
     Indication: MENORRHAGIA
  3. ZOFRAN [Concomitant]
     Indication: NAUSEA
  4. PHENERGAN [Concomitant]
     Indication: NAUSEA
  5. REGLAN [Concomitant]
     Indication: NAUSEA
  6. ORTHO CYCLEN [Concomitant]
  7. TORADOL [Concomitant]
  8. DILAUDID [Concomitant]
  9. ORTHO EVRA [Concomitant]

REACTIONS (6)
  - Uterine perforation [None]
  - Injury [None]
  - Pain [None]
  - Emotional distress [None]
  - Menorrhagia [None]
  - Menstruation irregular [None]
